FAERS Safety Report 7395724-0 (Version None)
Quarter: 2011Q2

REPORT INFORMATION
  Report Type: 
  Country: None (occurrence: None)
  Receive Date: 20110405
  Receipt Date: 20101229
  Transmission Date: 20111010
  Serious: No
  Sender: FDA-Public Use
  Company Number: US-BAYER-2011-026941

PATIENT
  Sex: Female
  Weight: 61 kg

DRUGS (1)
  1. ALEVE-D SINUS + COLD [Suspect]
     Dosage: BOTTLE COUNT 20S
     Route: 048
     Dates: start: 20101229

REACTIONS (2)
  - NAUSEA [None]
  - DIZZINESS [None]
